FAERS Safety Report 17248476 (Version 1)
Quarter: 2020Q1

REPORT INFORMATION
  Report Type: Spontaneous
  Country: US (occurrence: US)
  Receive Date: 20200108
  Receipt Date: 20200108
  Transmission Date: 20200409
  Serious: No
  Sender: FDA-Public Use
  Company Number: US-UPSHER-SMITH LABORATORIES, LLC-2019USL00836

PATIENT
  Age: 78 Year
  Sex: Male
  Weight: 61.22 kg

DRUGS (6)
  1. RASAGILINE. [Concomitant]
     Active Substance: RASAGILINE
     Dosage: 1 MG, 1X/DAY
  2. FISH OIL [Concomitant]
     Active Substance: FISH OIL
  3. AMANTADINE HYDROCHLORIDE. [Suspect]
     Active Substance: AMANTADINE HYDROCHLORIDE
     Indication: PARKINSON^S DISEASE
     Dosage: 100 MG, 2X/DAY
     Route: 048
     Dates: start: 20190906, end: 20191007
  4. TAMSULOSIN [Concomitant]
     Active Substance: TAMSULOSIN
  5. CALCIUM AND VITAMIN D [Concomitant]
     Active Substance: CALCIUM\VITAMIN D
  6. QUNOL 100 [Concomitant]

REACTIONS (6)
  - Rash macular [Recovered/Resolved]
  - Peripheral vascular disorder [Not Recovered/Not Resolved]
  - Hypoaesthesia [Recovered/Resolved]
  - Pruritus [Recovered/Resolved]
  - Rash [Recovered/Resolved]
  - Cellulitis [Recovered/Resolved]

NARRATIVE: CASE EVENT DATE: 2019
